FAERS Safety Report 7541909-X (Version None)
Quarter: 2011Q2

REPORT INFORMATION
  Report Type: 
  Country: None (occurrence: None)
  Receive Date: 20110613
  Receipt Date: 20110603
  Transmission Date: 20111010
  Serious: Yes (Hospitalization, Other)
  Sender: FDA-Public Use
  Company Number: BR-US-EMD SERONO, INC.-7063763

PATIENT
  Sex: Female

DRUGS (18)
  1. COLINE [Concomitant]
  2. SERTRALINE HYDROCHLORIDE [Concomitant]
  3. BUSONID [Concomitant]
  4. LIORESAL [Concomitant]
  5. CHOLECACIPHEROL [Concomitant]
  6. OMEPRAZOLE [Concomitant]
  7. MACRODANTIN [Concomitant]
  8. VITAMIN B-12 [Concomitant]
  9. PHENOBARBITAL TAB [Concomitant]
  10. DECADRON [Concomitant]
  11. FLUIMUCIL [Concomitant]
  12. DANTRIUM [Concomitant]
  13. ACETAMINOPHEN [Concomitant]
  14. MANTIDAN [Concomitant]
  15. CONEDON [Concomitant]
  16. MIRTRA [Concomitant]
  17. REBIF [Suspect]
     Indication: RELAPSING-REMITTING MULTIPLE SCLEROSIS
  18. LEXAPRO [Concomitant]

REACTIONS (4)
  - PNEUMONIA [None]
  - DEVICE RELATED SEPSIS [None]
  - URINARY TRACT INFECTION [None]
  - MULTIPLE SCLEROSIS RELAPSE [None]
